FAERS Safety Report 17585986 (Version 1)
Quarter: 2020Q1

REPORT INFORMATION
  Report Type: Spontaneous
  Country: US (occurrence: US)
  Receive Date: 20200325
  Receipt Date: 20200325
  Transmission Date: 20200409
  Serious: No
  Sender: FDA-Public Use
  Company Number: None

PATIENT
  Age: 62 Year
  Sex: Male

DRUGS (1)
  1. VOTRIENT [Suspect]
     Active Substance: PAZOPANIB HYDROCHLORIDE
     Route: 048
     Dates: start: 201910, end: 202003

REACTIONS (3)
  - Sneezing [None]
  - Impaired healing [None]
  - Conjunctival haemorrhage [None]

NARRATIVE: CASE EVENT DATE: 20200325
